FAERS Safety Report 5506646-1 (Version None)
Quarter: 2007Q4

REPORT INFORMATION
  Report Type: 
  Country: None (occurrence: None)
  Receive Date: 20071105
  Receipt Date: 20071025
  Transmission Date: 20080405
  Serious: Yes (Congenital Anomaly, Other)
  Sender: FDA-Public Use
  Company Number: US-ROCHE-414259

PATIENT
  Sex: Male
  Weight: 2.8 kg

DRUGS (3)
  1. ACCUTANE [Suspect]
     Dates: start: 19991206, end: 20000101
  2. MINOCYCLINE HCL [Concomitant]
     Dates: start: 19991206
  3. ORTHO TRI-CYCLEN [Concomitant]

REACTIONS (5)
  - ABORTION THREATENED [None]
  - AUTISM [None]
  - MENTAL RETARDATION SEVERITY UNSPECIFIED [None]
  - SENSORY DISTURBANCE [None]
  - SICK RELATIVE [None]
